FAERS Safety Report 8716057 (Version 2)
Quarter: 2012Q4

REPORT INFORMATION
  Report Type: 
  Country: GB (occurrence: GB)
  Receive Date: 20120809
  Receipt Date: 20120921
  Transmission Date: 20130627
  Serious: Yes (Other)
  Sender: FDA-Public Use
  Company Number: GB-WATSON-2012-14015

PATIENT
  Age: 36 Year
  Sex: Female

DRUGS (7)
  1. VENLAFAXINE HYDROCHLORIDE [Suspect]
     Indication: DEPRESSED MOOD
     Dosage: 150 mg, daily dosage form:unspecified
     Route: 048
  2. RISPERIDONE (UNKNOWN) [Suspect]
     Indication: SCHIZOPHRENIA
     Dosage: 2 mg, daily
     Route: 048
  3. CLOZARIL [Suspect]
     Indication: SCHIZOPHRENIA
     Dosage: Unknown
     Route: 048
     Dates: start: 20111118
  4. CLOZARIL [Suspect]
     Dosage: 450 mg, daily Dosage form: unspecified
     Route: 048
     Dates: start: 20111118
  5. HYOSCINE HYDROBROMIDE [Suspect]
     Indication: ADVERSE DRUG REACTION
     Dosage: 600 mcg, daily
     Route: 048
  6. MIRTAZAPINE [Concomitant]
     Indication: DEPRESSED MOOD
     Dosage: 45 mg, daily
     Route: 048
  7. DIAZEPAM [Concomitant]
     Indication: ANXIETY
     Dosage: UNK
     Route: 065

REACTIONS (3)
  - Anxiety [Unknown]
  - Therapy responder [Unknown]
  - Tachycardia [Not Recovered/Not Resolved]
